FAERS Safety Report 20655222 (Version 1)
Quarter: 2022Q1

REPORT INFORMATION
  Report Type: Report from Study
  Country: CN (occurrence: CN)
  Receive Date: 20220330
  Receipt Date: 20220330
  Transmission Date: 20220423
  Serious: Yes (Other)
  Sender: FDA-Public Use
  Company Number: CN-Merck Healthcare KGaA-9307470

PATIENT
  Age: 56 Year
  Sex: Female

DRUGS (12)
  1. CETUXIMAB [Suspect]
     Active Substance: CETUXIMAB
     Indication: Colon cancer
     Dosage: UNK UNK, UNKNOWN
     Route: 042
     Dates: start: 201907, end: 20190827
  2. CETUXIMAB [Suspect]
     Active Substance: CETUXIMAB
     Dosage: UNK UNK, UNKNOWN
     Route: 042
     Dates: start: 20190923, end: 20191230
  3. CETUXIMAB [Suspect]
     Active Substance: CETUXIMAB
     Dosage: UNK UNK, UNKNOWN
     Route: 042
     Dates: start: 20200120
  4. OXALIPLATIN [Concomitant]
     Active Substance: OXALIPLATIN
     Indication: Colon cancer
     Dosage: UNK UNK, UNKNOWN
     Dates: start: 20190705, end: 20190827
  5. OXALIPLATIN [Concomitant]
     Active Substance: OXALIPLATIN
     Dosage: UNK UNK, UNKNOWN
     Dates: start: 20190923, end: 20191230
  6. OXALIPLATIN [Concomitant]
     Active Substance: OXALIPLATIN
     Dosage: UNK UNK, UNKNOWN
     Dates: start: 20200120
  7. FLUOROURACIL [Concomitant]
     Active Substance: FLUOROURACIL
     Indication: Colon cancer
     Dosage: UNK UNK, UNKNOWN
     Dates: start: 20190705, end: 20190827
  8. FLUOROURACIL [Concomitant]
     Active Substance: FLUOROURACIL
     Dosage: UNK UNK, UNKNOWN
     Dates: start: 20190923, end: 20191230
  9. FLUOROURACIL [Concomitant]
     Active Substance: FLUOROURACIL
     Dosage: UNK UNK, UNKNOWN
     Dates: start: 20200120
  10. LEUCOVORIN CALCIUM [Concomitant]
     Active Substance: LEUCOVORIN CALCIUM
     Indication: Colon cancer
     Dosage: UNK UNK, UNKNOWN
     Dates: start: 20190705, end: 20190827
  11. LEUCOVORIN CALCIUM [Concomitant]
     Active Substance: LEUCOVORIN CALCIUM
     Dosage: UNK UNK, UNKNOWN
     Dates: start: 20190923, end: 20191230
  12. LEUCOVORIN CALCIUM [Concomitant]
     Active Substance: LEUCOVORIN CALCIUM
     Dosage: UNK UNK, UNKNOWN
     Dates: start: 20200120

REACTIONS (2)
  - Myelosuppression [Recovering/Resolving]
  - Transaminases increased [Recovered/Resolved]

NARRATIVE: CASE EVENT DATE: 20190101
